FAERS Safety Report 7919597-X (Version None)
Quarter: 2011Q4

REPORT INFORMATION
  Report Type: 
  Country: None (occurrence: None)
  Receive Date: 20111117
  Receipt Date: 20111110
  Transmission Date: 20120403
  Serious: Yes (Other)
  Sender: FDA-Public Use
  Company Number: US-JNJFOC-20111104775

PATIENT
  Sex: Female
  Weight: 52.16 kg

DRUGS (2)
  1. ALL OTHER THERAPEUTIC DRUG [Concomitant]
     Route: 048
     Dates: start: 20100101
  2. ORTHO EVRA [Suspect]
     Indication: CONTRACEPTION
     Route: 062
     Dates: start: 20111001

REACTIONS (1)
  - FOOT FRACTURE [None]
